FAERS Safety Report 6994464-7 (Version None)
Quarter: 2010Q3

REPORT INFORMATION
  Report Type: 
  Country: None (occurrence: None)
  Receive Date: 20100917
  Receipt Date: 20100908
  Transmission Date: 20110219
  Serious: Yes (Other)
  Sender: FDA-Public Use
  Company Number: GR-JNJFOC-20100903364

PATIENT

DRUGS (2)
  1. CAELYX [Suspect]
     Indication: OVARIAN CANCER METASTATIC
     Route: 042
  2. GEMCITABINE [Suspect]
     Indication: OVARIAN CANCER METASTATIC
     Route: 042

REACTIONS (1)
  - NEUROTOXICITY [None]
